FAERS Safety Report 15943888 (Version 1)
Quarter: 2019Q1

REPORT INFORMATION
  Report Type: Spontaneous
  Country: US (occurrence: US)
  Receive Date: 20190210
  Receipt Date: 20190210
  Transmission Date: 20190417
  Serious: No
  Sender: FDA-Public Use
  Company Number: US-GLENMARK PHARMACEUTICALS-2018GMK038760

PATIENT

DRUGS (1)
  1. BETAMETHASONE DIPROPIONATE. [Suspect]
     Active Substance: BETAMETHASONE DIPROPIONATE
     Indication: LICHEN SCLEROSUS
     Dosage: UNK, BID
     Route: 061
     Dates: start: 2018

REACTIONS (5)
  - Product prescribing error [Unknown]
  - Application site pruritus [Recovering/Resolving]
  - Product administered at inappropriate site [Unknown]
  - Unintentional use for unapproved indication [Unknown]
  - Application site rash [Recovering/Resolving]

NARRATIVE: CASE EVENT DATE: 2018
